FAERS Safety Report 9549859 (Version 1)
Quarter: 2013Q3

REPORT INFORMATION
  Report Type: Spontaneous
  Country: AU (occurrence: AU)
  Receive Date: 20130924
  Receipt Date: 20130924
  Transmission Date: 20140515
  Serious: Yes (Other)
  Sender: FDA-Public Use
  Company Number: AU-MYLANLABS-2013S1020631

PATIENT
  Age: 72 Year
  Sex: Female

DRUGS (6)
  1. LITHIUM [Suspect]
     Indication: SCHIZOAFFECTIVE DISORDER
     Route: 065
     Dates: start: 1993, end: 2005
  2. ARIPIPRAZOLE [Concomitant]
     Dosage: 10MG DAILY
     Route: 065
  3. SODIUM VALPROATE [Concomitant]
     Route: 065
  4. ATORVASTATIN [Concomitant]
     Dosage: 20MG DAILY
     Route: 065
  5. LEVOTHYROXINE SODIUM [Concomitant]
     Dosage: 50MICROG DAILY
     Route: 065
  6. PRITORPLUS [Concomitant]
     Dosage: 80MG TELMISARTAN/12.5MG HYDROCHLOROTHIAZIDE DAILY
     Route: 065

REACTIONS (5)
  - Clear cell renal cell carcinoma [Recovered/Resolved]
  - Acquired cystic kidney disease [Unknown]
  - Toxicity to various agents [Unknown]
  - Renal failure chronic [Unknown]
  - Tubulointerstitial nephritis [Unknown]
